FAERS Safety Report 7786069-5 (Version None)
Quarter: 2011Q3

REPORT INFORMATION
  Report Type: 
  Country: None (occurrence: None)
  Receive Date: 20110929
  Receipt Date: 20110927
  Transmission Date: 20111222
  Serious: Yes (Other)
  Sender: FDA-Public Use
  Company Number: IT-PFIZER INC-2011230558

PATIENT
  Age: 60 Year
  Sex: Male

DRUGS (1)
  1. PIROXICAM [Suspect]

REACTIONS (1)
  - CUTANEOUS LUPUS ERYTHEMATOSUS [None]
